FAERS Safety Report 10378767 (Version 3)
Quarter: 2014Q4

REPORT INFORMATION
  Report Type: Spontaneous
  Country: IT (occurrence: IT)
  Receive Date: 20140812
  Receipt Date: 20141031
  Transmission Date: 20150528
  Serious: Yes (Life-Threatening)
  Sender: FDA-Public Use
  Company Number: IT-009507513-1408ITA006352

PATIENT
  Age: 79 Year
  Sex: Male

DRUGS (12)
  1. DELTACORTENE [Concomitant]
     Active Substance: PREDNISONE
     Route: 048
  2. DEURSIL [Concomitant]
     Active Substance: URSODIOL
     Dosage: 600 MG, UNK
     Route: 048
  3. MAG2 [Concomitant]
     Dosage: 1.5 G, UNK
     Route: 048
  4. CERTICAN [Concomitant]
     Active Substance: EVEROLIMUS
     Dosage: UNK
     Route: 048
     Dates: end: 201407
  5. NEORAL SANDIMMUN [Concomitant]
     Route: 048
  6. COUMADIN [Concomitant]
     Active Substance: WARFARIN SODIUM
     Route: 048
  7. LOSARTAN POTASSIUM AND HYDROCHLOROTHIAZIDE [Concomitant]
     Active Substance: HYDROCHLOROTHIAZIDE\LOSARTAN POTASSIUM
     Dosage: UNK
     Route: 048
  8. FOSAMAX 70 MG COMPRESSE [Concomitant]
     Dosage: 70 MG, UNK
     Route: 048
  9. ZYLORIC [Concomitant]
     Active Substance: ALLOPURINOL
     Dosage: 150 MG, UNK
     Route: 048
  10. DILZENE [Concomitant]
     Active Substance: DILTIAZEM HYDROCHLORIDE
     Dosage: 60 MG, UNK
     Route: 048
     Dates: end: 201407
  11. PANTORC [Concomitant]
     Active Substance: PANTOPRAZOLE SODIUM
     Dosage: 40 MG, UNK
     Route: 048
  12. VYTORIN [Suspect]
     Active Substance: EZETIMIBE\SIMVASTATIN
     Indication: DYSLIPIDAEMIA
     Dosage: 1 DOSE UNIT, QD
     Route: 048
     Dates: start: 20130901, end: 20140704

REACTIONS (3)
  - Acute kidney injury [Recovering/Resolving]
  - Ileus paralytic [Recovering/Resolving]
  - Rhabdomyolysis [Recovering/Resolving]

NARRATIVE: CASE EVENT DATE: 20140704
